FAERS Safety Report 4384127-9 (Version None)
Quarter: 2004Q2

REPORT INFORMATION
  Report Type: 
  Country: None (occurrence: None)
  Receive Date: 20040621
  Receipt Date: 20040607
  Transmission Date: 20050107
  Serious: Yes (Other)
  Sender: FDA-Public Use
  Company Number: 2004037848

PATIENT
  Age: 26 Year
  Sex: Male

DRUGS (1)
  1. ZOLOFT [Suspect]
     Indication: ILL-DEFINED DISORDER
     Dates: start: 20020601

REACTIONS (5)
  - ABDOMINAL PAIN UPPER [None]
  - AGGRESSION [None]
  - DRUG TOXICITY [None]
  - FATIGUE [None]
  - HOMICIDAL IDEATION [None]
